FAERS Safety Report 12730844 (Version 4)
Quarter: 2016Q4

REPORT INFORMATION
  Report Type: Spontaneous
  Country: JP (occurrence: JP)
  Receive Date: 20160910
  Receipt Date: 20161021
  Transmission Date: 20170207
  Serious: Yes (Other)
  Sender: FDA-Public Use
  Company Number: JP-UCBSA-2016033905

PATIENT
  Age: 20 Year
  Sex: Female

DRUGS (21)
  1. E KEPPRA [Suspect]
     Active Substance: LEVETIRACETAM
     Indication: OFF LABEL USE
     Dosage: 500 MG, 2X/DAY (BID)
     Route: 048
     Dates: start: 20120928, end: 20150411
  2. DEPAKENE [Suspect]
     Active Substance: VALPROIC ACID
     Dosage: 500 MG, 2X/DAY (BID)
     Route: 048
     Dates: start: 20080806, end: 20080907
  3. DEPAKENE [Suspect]
     Active Substance: VALPROIC ACID
     Dosage: 300 MG, 2X/DAY (BID)
     Route: 048
     Dates: start: 20130822, end: 201309
  4. E KEPPRA [Suspect]
     Active Substance: LEVETIRACETAM
     Indication: JUVENILE MYOCLONIC EPILEPSY
     Dosage: 250 MG, 2X/DAY (BID)
     Route: 048
     Dates: start: 20120921, end: 20120928
  5. DEPAKENE [Suspect]
     Active Substance: VALPROIC ACID
     Dosage: 1100 MG, ONCE DAILY (QD)
     Route: 048
     Dates: start: 20091219, end: 20100115
  6. DEPAKENE [Suspect]
     Active Substance: VALPROIC ACID
     Dosage: 700 MG, ONCE DAILY (QD)
     Route: 048
     Dates: start: 20130326, end: 20130821
  7. E KEPPRA [Suspect]
     Active Substance: LEVETIRACETAM
     Dosage: 500 MG, 2X/DAY (BID)
     Route: 048
     Dates: start: 20150528
  8. DEPAKENE [Suspect]
     Active Substance: VALPROIC ACID
     Indication: PRODUCT USED FOR UNKNOWN INDICATION
     Dosage: 200 MG, 2X/DAY (BID)
     Route: 048
     Dates: start: 200711, end: 200712
  9. DEPAKENE [Suspect]
     Active Substance: VALPROIC ACID
     Dosage: 500 MG, 2X/DAY (BID)
     Route: 048
     Dates: start: 20100116, end: 20100212
  10. E KEPPRA [Suspect]
     Active Substance: LEVETIRACETAM
     Dosage: 1500 MG, 2X/DAY (BID)
     Route: 048
     Dates: start: 2015, end: 20150511
  11. DEPAKENE [Suspect]
     Active Substance: VALPROIC ACID
     Dosage: 400 MG, 2X/DAY (BID)
     Route: 048
     Dates: start: 200804, end: 20080805
  12. DEPAKENE [Suspect]
     Active Substance: VALPROIC ACID
     Dosage: 300 MG, 2X/DAY (BID)
     Route: 048
     Dates: start: 200712, end: 200804
  13. E KEPPRA [Suspect]
     Active Substance: LEVETIRACETAM
     Dosage: 1000 MG, 2X/DAY (BID)
     Route: 048
     Dates: start: 20150412, end: 20150430
  14. E KEPPRA [Suspect]
     Active Substance: LEVETIRACETAM
     Dosage: 1000 MG, 2X/DAY (BID)
     Route: 048
     Dates: start: 20150512, end: 20150527
  15. DEPAKENE [Suspect]
     Active Substance: VALPROIC ACID
     Dosage: 900 MG, ONCE DAILY (QD)
     Route: 048
     Dates: start: 20100213, end: 20100908
  16. DEPAKENE [Suspect]
     Active Substance: VALPROIC ACID
     Dosage: 400 MG, 2X/DAY (BID)
     Route: 048
     Dates: start: 20100909, end: 20130325
  17. DEPAKENE [Suspect]
     Active Substance: VALPROIC ACID
     Dosage: 500 MG, ONCE DAILY (QD)
     Route: 048
     Dates: start: 201309, end: 201310
  18. DEPAKENE [Suspect]
     Active Substance: VALPROIC ACID
     Dosage: 200 MG, 2X/DAY (BID)
     Route: 048
     Dates: start: 201310, end: 20150511
  19. DEPAKENE [Suspect]
     Active Substance: VALPROIC ACID
     Dosage: 400 MG, 2X/DAY (BID)
     Route: 048
     Dates: start: 20150512, end: 20150824
  20. LAMICTAL [Concomitant]
     Active Substance: LAMOTRIGINE
     Indication: PRODUCT USED FOR UNKNOWN INDICATION
     Dosage: 25 MG, EV 2 DAYS (QOD)
     Route: 048
  21. DEPAKENE [Suspect]
     Active Substance: VALPROIC ACID
     Dosage: 600 MG, 2X/DAY (BID)
     Route: 048
     Dates: start: 20080908, end: 20091218

REACTIONS (3)
  - Thyroiditis [Recovered/Resolved]
  - Hyperthyroidism [Recovered/Resolved]
  - Off label use [Unknown]

NARRATIVE: CASE EVENT DATE: 20120921
